FAERS Safety Report 10090664 (Version 1)
Quarter: 2014Q2

REPORT INFORMATION
  Report Type: Report from Study
  Country: JP (occurrence: JP)
  Receive Date: 20140421
  Receipt Date: 20140421
  Transmission Date: 20141212
  Serious: Yes (Other)
  Sender: FDA-Public Use
  Company Number: JP-B.I. PHARMACEUTICALS,INC./RIDGEFIELD-2014-BI-17383NB

PATIENT
  Age: 71 Year
  Sex: Male
  Weight: 41.1 kg

DRUGS (5)
  1. PRAZAXA [Suspect]
     Indication: CEREBROVASCULAR ACCIDENT PROPHYLAXIS
     Dosage: 220 MG
     Route: 048
     Dates: start: 20131028, end: 20140202
  2. LAMICTAL [Suspect]
     Indication: PRODUCT USED FOR UNKNOWN INDICATION
     Dosage: 25 MG
     Route: 048
     Dates: start: 20131230, end: 20140202
  3. DEPAKENE-R (SODIUM VALPROATE) [Concomitant]
     Dosage: 400 MG
     Route: 048
     Dates: end: 20140202
  4. MARZULENE-S (SODIUM GUALENATE HYDRATE_L-GLUTAMINE) [Concomitant]
     Dosage: 1 G
     Route: 048
  5. SELARA (EPLERENONE) [Concomitant]
     Dosage: 50 MG
     Route: 048
     Dates: start: 20131029

REACTIONS (2)
  - Pancytopenia [Unknown]
  - Renal impairment [Recovered/Resolved]
